FAERS Safety Report 12743581 (Version 6)
Quarter: 2022Q4

REPORT INFORMATION
  Report Type: Report from Study
  Country: JP (occurrence: JP)
  Receive Date: 20160914
  Receipt Date: 20221222
  Transmission Date: 20230113
  Serious: Yes (Death, Disabling, Other)
  Sender: FDA-Public Use
  Company Number: JP-002147023-PHJP2016JP024818

PATIENT

DRUGS (3)
  1. RUXOLITINIB [Suspect]
     Active Substance: RUXOLITINIB
     Indication: Myelofibrosis
     Dosage: 5 MG, QD
     Route: 048
     Dates: start: 20160526, end: 20160530
  2. RUXOLITINIB [Suspect]
     Active Substance: RUXOLITINIB
     Indication: Myelofibrosis
     Dosage: 5 MG, BID
     Route: 048
     Dates: start: 20160531, end: 20160620
  3. RUXOLITINIB [Suspect]
     Active Substance: RUXOLITINIB
     Dosage: 15 MG, BID
     Route: 048
     Dates: start: 20160811, end: 20160823

REACTIONS (4)
  - Haemoglobin decreased [Unknown]
  - Hepatic function abnormal [Not Recovered/Not Resolved]
  - Interstitial lung disease [Fatal]
  - Pulmonary tuberculosis [Fatal]

NARRATIVE: CASE EVENT DATE: 20160822
